FAERS Safety Report 9349919 (Version 1)
Quarter: 2013Q2

REPORT INFORMATION
  Report Type: Spontaneous
  Country: US (occurrence: US)
  Receive Date: 20130614
  Receipt Date: 20130614
  Transmission Date: 20140414
  Serious: Yes (Life-Threatening, Hospitalization, Other)
  Sender: FDA-Public Use
  Company Number: PHHY2013US060250

PATIENT
  Age: 16 Year
  Sex: Female

DRUGS (1)
  1. ACETYLSALICYLIC ACID [Suspect]

REACTIONS (7)
  - Toxicity to various agents [Recovered/Resolved]
  - Respiratory depression [Recovered/Resolved]
  - Tachypnoea [Recovered/Resolved]
  - Hyperventilation [Recovered/Resolved]
  - Intentional drug misuse [Unknown]
  - Mental disorder [Recovered/Resolved]
  - Tachycardia [Recovered/Resolved]
